APPROVED DRUG PRODUCT: VOSTALLY
Active Ingredient: RAMIPRIL
Strength: 1MG/ML
Dosage Form/Route: SOLUTION;ORAL
Application: N219757 | Product #001
Applicant: ROSEMONT PHARMACEUTICALS INC
Approved: Jul 23, 2025 | RLD: Yes | RS: Yes | Type: RX

PATENTS:
Patent 12343338 | Expires: Aug 16, 2039